FAERS Safety Report 24837456 (Version 5)
Quarter: 2025Q4

REPORT INFORMATION
  Report Type: Report from Study
  Country: US (occurrence: US)
  Receive Date: 20250113
  Receipt Date: 20251123
  Transmission Date: 20260118
  Serious: Yes (Other)
  Sender: ABBVIE
  Company Number: US-ABBVIE-6073134

PATIENT
  Age: 60 Year
  Sex: Female

DRUGS (1)
  1. SKYRIZI [Suspect]
     Active Substance: RISANKIZUMAB-RZAA
     Indication: Crohn^s disease
     Route: 058
     Dates: start: 20240723

REACTIONS (13)
  - Sinus operation [Recovering/Resolving]
  - Upper respiratory tract infection [Unknown]
  - Nasal operation [Unknown]
  - Nasal congestion [Not Recovered/Not Resolved]
  - Post procedural contusion [Recovering/Resolving]
  - Dysphonia [Unknown]
  - Nasal oedema [Unknown]
  - Post procedural complication [Unknown]
  - Allergic sinusitis [Unknown]
  - Paranasal sinus hypersecretion [Recovering/Resolving]
  - Inappropriate schedule of product administration [Recovering/Resolving]
  - Abdominal pain upper [Unknown]
  - Headache [Recovering/Resolving]

NARRATIVE: CASE EVENT DATE: 20250101
